FAERS Safety Report 10518597 (Version 2)
Quarter: 2014Q4

REPORT INFORMATION
  Report Type: Report from Study
  Country: IT (occurrence: IT)
  Receive Date: 20141015
  Receipt Date: 20141015
  Transmission Date: 20150528
  Serious: Yes (Other)
  Sender: FDA-Public Use
  Company Number: IT-LEO PHARMA-223584

PATIENT
  Age: 78 Year
  Sex: Female
  Weight: 73 kg

DRUGS (3)
  1. LOSARTAN [Concomitant]
     Active Substance: LOSARTAN
     Indication: HYPERTENSION
     Route: 048
  2. PICATO [Suspect]
     Active Substance: INGENOL MEBUTATE
     Indication: ACTINIC KERATOSIS
     Route: 061
     Dates: start: 20130819, end: 20130820
  3. ACETYLSALICYLIC ACIID [Concomitant]
     Indication: CARDIOVASCULAR DISORDER

REACTIONS (1)
  - Keratoacanthoma [Not Recovered/Not Resolved]

NARRATIVE: CASE EVENT DATE: 20130915
